FAERS Safety Report 9155650 (Version 1)
Quarter: 2013Q1

REPORT INFORMATION
  Report Type: Spontaneous
  Country: US (occurrence: US)
  Receive Date: 20130311
  Receipt Date: 20130311
  Transmission Date: 20140127
  Serious: No
  Sender: FDA-Public Use
  Company Number: US-ASTRAZENECA-2011SE18945

PATIENT
  Age: 69 Year
  Sex: Female
  Weight: 63 kg

DRUGS (9)
  1. CRESTOR [Suspect]
     Indication: BLOOD CHOLESTEROL INCREASED
     Route: 048
     Dates: start: 20110331
  2. ENTOCORT EC [Suspect]
     Indication: CROHN^S DISEASE
     Route: 048
  3. UNSPECIFIED [Suspect]
     Route: 048
  4. TEKTURNA [Concomitant]
  5. CLONIDINE [Concomitant]
  6. METOPROLOL TARTRATE [Concomitant]
  7. BABY ASPIRIN [Concomitant]
  8. ISORBATE [Concomitant]
  9. MED FOR DIARRHEA [Concomitant]

REACTIONS (5)
  - Eye inflammation [Unknown]
  - Diarrhoea [Unknown]
  - Muscle spasms [Unknown]
  - Muscle disorder [Unknown]
  - Drug hypersensitivity [Unknown]
